FAERS Safety Report 6667376-6 (Version None)
Quarter: 2010Q2

REPORT INFORMATION
  Report Type: 
  Country: None (occurrence: None)
  Receive Date: 20100405
  Receipt Date: 20100324
  Transmission Date: 20101027
  Serious: Yes (Other)
  Sender: FDA-Public Use
  Company Number: PHHY2010US18103

PATIENT
  Sex: Female

DRUGS (10)
  1. ZOMETA [Suspect]
     Indication: MULTIPLE MYELOMA
     Dosage: 4 MG MONTHLY
     Route: 042
     Dates: start: 20050301
  2. PRAVACHOL [Suspect]
  3. NEXIUM [Suspect]
  4. FLEXERIL [Suspect]
     Dosage: UNK
  5. LORCET-HD [Suspect]
  6. SYNTHROID [Suspect]
  7. REVLIMID [Suspect]
  8. VELCADE [Suspect]
     Dosage: UNK
  9. AMBIEN [Concomitant]
     Indication: SLEEP DISORDER
     Dosage: UNK, PRN
     Route: 048
  10. VALIUM [Concomitant]
     Indication: ANXIETY
     Dosage: UNK, PRN
     Route: 048

REACTIONS (9)
  - BONE DEBRIDEMENT [None]
  - BONE DISORDER [None]
  - BONE LESION [None]
  - EYE HAEMORRHAGE [None]
  - ORAL DISCOMFORT [None]
  - OSTEONECROSIS [None]
  - PRIMARY SEQUESTRUM [None]
  - RIB FRACTURE [None]
  - TOOTH LOSS [None]
